FAERS Safety Report 9816260 (Version 1)
Quarter: 2014Q1

REPORT INFORMATION
  Report Type: Spontaneous
  Country: IT (occurrence: IT)
  Receive Date: 20140114
  Receipt Date: 20140114
  Transmission Date: 20141002
  Serious: Yes (Hospitalization)
  Sender: FDA-Public Use
  Company Number: IT-BAYER-2014-006477

PATIENT
  Age: 87 Year
  Sex: Female

DRUGS (2)
  1. CARDIOASPIRIN [Suspect]
     Indication: THROMBOSIS PROPHYLAXIS
     Dosage: DAILY DOSE 100 MG
     Route: 048
     Dates: start: 20130101, end: 20131205
  2. LANSOX [Concomitant]
     Route: 048

REACTIONS (2)
  - Rectal haemorrhage [Unknown]
  - Diverticulitis [Unknown]
